FAERS Safety Report 11621080 (Version 1)
Quarter: 2015Q4

REPORT INFORMATION
  Report Type: Spontaneous
  Country: None (occurrence: US)
  Receive Date: 20151012
  Receipt Date: 20151012
  Transmission Date: 20160304
  Serious: No
  Sender: FDA-Public Use
  Company Number: US-MEDAC PHARMA, INC.-1042836

PATIENT
  Age: 16 Year
  Sex: Female
  Weight: 65.91 kg

DRUGS (2)
  1. CELLCEPT [Concomitant]
     Active Substance: MYCOPHENOLATE MOFETIL\MYCOPHENOLATE MOFETIL HYDROCHLORIDE
  2. RASUVO [Suspect]
     Active Substance: METHOTREXATE SODIUM
     Indication: UVEITIS
     Route: 058
     Dates: start: 20150814

REACTIONS (4)
  - Device malfunction [None]
  - Product use issue [None]
  - Incorrect product storage [None]
  - Accidental exposure to product [None]

NARRATIVE: CASE EVENT DATE: 20150904
